FAERS Safety Report 8348346-9 (Version None)
Quarter: 2012Q2

REPORT INFORMATION
  Report Type: 
  Country: None (occurrence: None)
  Receive Date: 20120509
  Receipt Date: 20120507
  Transmission Date: 20120825
  Serious: Yes (Hospitalization)
  Sender: FDA-Public Use
  Company Number: DE-ROCHE-1042499

PATIENT
  Sex: Female
  Weight: 161 kg

DRUGS (8)
  1. METOCLOPRAMIDE [Concomitant]
  2. RAMIPRIL [Concomitant]
     Dates: start: 20120214
  3. AVASTIN [Suspect]
     Indication: BREAST CANCER
     Dosage: RECENT DOSE ON 8 FEB 2012
     Route: 042
     Dates: start: 20120208
  4. METOPROLOL TARTRATE [Concomitant]
     Dates: start: 20120114
  5. OXAZEPAM [Concomitant]
     Dates: start: 20120101
  6. XELODA [Suspect]
     Indication: BREAST CANCER
     Route: 048
     Dates: start: 20120208
  7. VINORELBINE TARTRATE [Suspect]
     Indication: BREAST CANCER
     Dosage: RECENT DOSE ON 08/FEB/2012
     Route: 042
     Dates: start: 20120208
  8. OMEPRAZOLE [Concomitant]
     Dates: start: 20120214

REACTIONS (3)
  - LEUKOPENIA [None]
  - GENERAL PHYSICAL HEALTH DETERIORATION [None]
  - ABDOMINAL PAIN [None]
